FAERS Safety Report 5000170-0 (Version None)
Quarter: 2006Q2

REPORT INFORMATION
  Report Type: 
  Country: None (occurrence: None)
  Receive Date: 20060504
  Receipt Date: 20060403
  Transmission Date: 20061013
  Serious: Yes (Other)
  Sender: FDA-Public Use
  Company Number: WSDF_00531

PATIENT
  Age: 80 Year
  Sex: Male
  Weight: 74 kg

DRUGS (8)
  1. WINRHO SDF [Suspect]
     Indication: IDIOPATHIC THROMBOCYTOPENIC PURPURA
     Dosage: 48.6 MCG/KG ONCE IV
     Route: 042
     Dates: start: 20060313, end: 20060313
  2. PREDNISOLONE [Concomitant]
  3. OMEPRAZOLE [Concomitant]
  4. NIFEDIPINE [Concomitant]
  5. FINASTERIDE [Concomitant]
  6. TAMSULOSIN HCL [Concomitant]
  7. SIMVASTATIN [Concomitant]
  8. FRUSEMIDE [Concomitant]

REACTIONS (5)
  - ANAPHYLACTIC REACTION [None]
  - BLOOD BILIRUBIN INCREASED [None]
  - ELECTROCARDIOGRAM T WAVE INVERSION [None]
  - HYPOTENSION [None]
  - TROPONIN INCREASED [None]
